FAERS Safety Report 6100276-9 (Version None)
Quarter: 2009Q1

REPORT INFORMATION
  Report Type: 
  Country: None (occurrence: None)
  Receive Date: 20090303
  Receipt Date: 20090219
  Transmission Date: 20090719
  Serious: Yes (Other)
  Sender: FDA-Public Use
  Company Number: FR-PFIZER INC-2009173936

PATIENT

DRUGS (2)
  1. LYRICA [Suspect]
     Indication: NEURALGIA
     Dosage: 100 MG, 2X/DAY
  2. DRUG, UNSPECIFIED [Concomitant]
     Indication: DEPRESSION

REACTIONS (2)
  - DEPRESSION [None]
  - SUICIDE ATTEMPT [None]
